FAERS Safety Report 9714400 (Version 1)
Quarter: 2013Q4

REPORT INFORMATION
  Report Type: Spontaneous
  Country: SE (occurrence: SE)
  Receive Date: 20131126
  Receipt Date: 20131126
  Transmission Date: 20140711
  Serious: Yes (Other)
  Sender: FDA-Public Use
  Company Number: SE-B.I. PHARMACEUTICALS,INC./RIDGEFIELD-2013-BI-38491SW

PATIENT
  Sex: Male

DRUGS (2)
  1. PERSANTIN DEPOT [Suspect]
     Indication: INFARCTION
  2. EZETROL [Concomitant]
     Indication: INFARCTION

REACTIONS (2)
  - Transient ischaemic attack [Unknown]
  - Headache [Unknown]
